FAERS Safety Report 10068193 (Version 2)
Quarter: 2014Q2

REPORT INFORMATION
  Report Type: Spontaneous
  Country: US (occurrence: US)
  Receive Date: 20140409
  Receipt Date: 20140602
  Transmission Date: 20141212
  Serious: No
  Sender: FDA-Public Use
  Company Number: US-PFIZER INC-2014099459

PATIENT
  Age: 89 Year
  Sex: Male
  Weight: 80.7 kg

DRUGS (2)
  1. LYRICA [Suspect]
     Indication: PARAESTHESIA
     Dosage: 75 MG, 2X/DAY
     Dates: start: 2014
  2. LYRICA [Suspect]
     Indication: HYPOAESTHESIA

REACTIONS (1)
  - Drug ineffective [Unknown]
